FAERS Safety Report 7565540-5 (Version None)
Quarter: 2011Q2

REPORT INFORMATION
  Report Type: 
  Country: None (occurrence: None)
  Receive Date: 20110623
  Receipt Date: 20110617
  Transmission Date: 20111010
  Serious: Yes (Other)
  Sender: FDA-Public Use
  Company Number: FR-BRISTOL-MYERS SQUIBB COMPANY-15764996

PATIENT
  Age: 51 Year
  Sex: Male
  Weight: 63 kg

DRUGS (2)
  1. CISPLATIN [Suspect]
     Indication: NON-SMALL CELL LUNG CANCER STAGE IV
     Dosage: 7APR11-14APR11(8D) 75MG/M2 INT ON 14APR11
     Route: 065
     Dates: start: 20101223, end: 20110324
  2. GEMZAR [Suspect]
     Indication: NON-SMALL CELL LUNG CANCER STAGE IV
     Dosage: VIAL 7APR11-14APR11(8D)1250 MG/M2 INT ON 14APR11
     Route: 065
     Dates: start: 20101223, end: 20110324

REACTIONS (2)
  - INCORRECT DOSE ADMINISTERED [None]
  - NEUTROPENIA [None]
